FAERS Safety Report 19267407 (Version 3)
Quarter: 2021Q2

REPORT INFORMATION
  Report Type: Report from Study
  Country: None (occurrence: US)
  Receive Date: 20210518
  Receipt Date: 20210603
  Transmission Date: 20210717
  Serious: Yes (Death)
  Sender: FDA-Public Use
  Company Number: US-MELINTA THERAPEUTICS, LLC-US-MLNT-21-00049

PATIENT
  Age: 66 Year
  Sex: Male

DRUGS (1)
  1. ORBACTIV [Suspect]
     Active Substance: ORITAVANCIN
     Indication: CELLULITIS
     Route: 041
     Dates: start: 20210114, end: 20210114

REACTIONS (1)
  - Death [Fatal]

NARRATIVE: CASE EVENT DATE: 20210304
